FAERS Safety Report 12564148 (Version 1)
Quarter: 2016Q3

REPORT INFORMATION
  Report Type: Spontaneous
  Country: US (occurrence: None)
  Receive Date: 20160715
  Receipt Date: 20160715
  Transmission Date: 20161109
  Serious: No
  Sender: FDA-Public Use
  Company Number: None

PATIENT
  Age: 67 Year
  Sex: Female
  Weight: 113.4 kg

DRUGS (1)
  1. CIPROFLOXACIN, 250MG [Suspect]
     Active Substance: CIPROFLOXACIN
     Indication: CYSTITIS
     Route: 048
     Dates: start: 20160711, end: 20160714

REACTIONS (7)
  - Nausea [None]
  - Abasia [None]
  - Pain in extremity [None]
  - Headache [None]
  - Insomnia [None]
  - Fatigue [None]
  - Diarrhoea [None]

NARRATIVE: CASE EVENT DATE: 20160713
